FAERS Safety Report 8979631 (Version 3)
Quarter: 2013Q1

REPORT INFORMATION
  Report Type: Spontaneous
  Country: US (occurrence: US)
  Receive Date: 20121221
  Receipt Date: 20130208
  Transmission Date: 20140127
  Serious: Yes (Hospitalization, Other)
  Sender: FDA-Public Use
  Company Number: US-ASTRAZENECA-2012SE93499

PATIENT
  Age: 62 Year
  Sex: Female
  Weight: 77.1 kg

DRUGS (12)
  1. PRILOSEC OTC [Suspect]
     Indication: GASTROOESOPHAGEAL REFLUX DISEASE
     Route: 048
  2. PRILOSEC OTC [Suspect]
     Indication: GASTROOESOPHAGEAL REFLUX DISEASE
     Route: 048
     Dates: start: 20121120, end: 20121206
  3. METOPROLOL [Suspect]
     Indication: PALPITATIONS
     Dosage: 1 X DAY
     Route: 065
  4. ACCUPRIL [Concomitant]
     Indication: BLOOD PRESSURE
     Dosage: 1 X DAY
  5. JANUVIA [Concomitant]
     Indication: DIABETES MELLITUS
     Route: 048
     Dates: start: 20121116
  6. MICRONAISE [Concomitant]
     Indication: DIABETES MELLITUS
     Dosage: 2 X DAY
  7. GLUCOPHAGE [Concomitant]
     Indication: DIABETES MELLITUS
     Dosage: 2 X DAY
  8. LOVASTATIN [Concomitant]
     Indication: BLOOD CHOLESTEROL INCREASED
     Route: 048
     Dates: start: 20121107
  9. GLYBURIDE [Concomitant]
     Route: 048
     Dates: start: 20120813
  10. METFORMIN HCL [Concomitant]
     Route: 048
     Dates: start: 20121024
  11. QUINAPRIL HCL [Concomitant]
     Route: 048
     Dates: start: 20121012
  12. ZOLPIDEM TARTRATE [Concomitant]
     Indication: INSOMNIA
     Route: 048
     Dates: start: 20121017

REACTIONS (34)
  - Hypokalaemia [Not Recovered/Not Resolved]
  - Hypocalcaemia [Not Recovered/Not Resolved]
  - Pain [Unknown]
  - Tremor [Unknown]
  - Bone pain [Unknown]
  - Hypomagnesaemia [Not Recovered/Not Resolved]
  - Malaise [Unknown]
  - Myalgia [Unknown]
  - Hypoproteinaemia [Not Recovered/Not Resolved]
  - Hyperglycaemia [Unknown]
  - Dehydration [Unknown]
  - Dizziness [Recovering/Resolving]
  - Vomiting [Unknown]
  - Palpitations [Unknown]
  - Type 2 diabetes mellitus [Unknown]
  - Muscle spasms [Unknown]
  - Abdominal pain [Unknown]
  - Anxiety [Unknown]
  - Chronic obstructive pulmonary disease [Unknown]
  - Gastrooesophageal reflux disease [Unknown]
  - Hyperlipidaemia [Unknown]
  - Hypertension [Unknown]
  - Osteoarthritis [Unknown]
  - Otitis externa [Unknown]
  - Ataxia [Unknown]
  - Urinary incontinence [Unknown]
  - Asthma [Unknown]
  - Obesity [Unknown]
  - Diarrhoea [Unknown]
  - Insomnia [Unknown]
  - Vertigo [Unknown]
  - Depression [Unknown]
  - Nausea [Unknown]
  - Off label use [Unknown]
